FAERS Safety Report 10668141 (Version 1)
Quarter: 2014Q4

REPORT INFORMATION
  Report Type: Spontaneous
  Country: US (occurrence: US)
  Receive Date: 20141222
  Receipt Date: 20141222
  Transmission Date: 20150529
  Serious: Yes (Hospitalization, Other)
  Sender: FDA-Public Use
  Company Number: US-GLAXOSMITHKLINE-US2014037112

PATIENT
  Sex: Male

DRUGS (13)
  1. ALLOPURINOL. [Concomitant]
     Active Substance: ALLOPURINOL
  2. LATANOPROST. [Concomitant]
     Active Substance: LATANOPROST
  3. PREDNISONE. [Concomitant]
     Active Substance: PREDNISONE
  4. SIMVASTATIN. [Concomitant]
     Active Substance: SIMVASTATIN
  5. ADVAIR DISKUS [Suspect]
     Active Substance: FLUTICASONE PROPIONATE\SALMETEROL XINAFOATE
     Indication: CHRONIC OBSTRUCTIVE PULMONARY DISEASE
     Dosage: 1 PUFF(S), BID
     Route: 055
  6. METFORMIN [Concomitant]
     Active Substance: METFORMIN HYDROCHLORIDE
  7. ALBUTEROL. [Concomitant]
     Active Substance: ALBUTEROL
  8. METOPROLOL [Concomitant]
     Active Substance: METOPROLOL
  9. ELIQUIS [Concomitant]
     Active Substance: APIXABAN
  10. LISINOPRIL. [Concomitant]
     Active Substance: LISINOPRIL
  11. NIACIN. [Concomitant]
     Active Substance: NIACIN
  12. ASPIRIN. [Concomitant]
     Active Substance: ASPIRIN
  13. RANITIDINE [Concomitant]
     Active Substance: RANITIDINE\RANITIDINE HYDROCHLORIDE

REACTIONS (8)
  - Dyspnoea [Unknown]
  - Loss of consciousness [Recovered/Resolved]
  - Chest pain [Unknown]
  - Lung disorder [Not Recovered/Not Resolved]
  - Drug dose omission [Recovered/Resolved]
  - Pneumonia [Unknown]
  - Cardiac disorder [Unknown]
  - Apparent death [Recovered/Resolved]

NARRATIVE: CASE EVENT DATE: 2013
